FAERS Safety Report 9290350 (Version 1)
Quarter: 2013Q2

REPORT INFORMATION
  Report Type: Spontaneous
  Country: US (occurrence: None)
  Receive Date: 20130514
  Receipt Date: 20130514
  Transmission Date: 20140414
  Serious: No
  Sender: FDA-Public Use
  Company Number: None

PATIENT
  Age: 26 Year
  Sex: Male
  Weight: 99.7 kg

DRUGS (3)
  1. HALOPERIDOL [Suspect]
     Indication: DELIRIUM
     Dosage: 5 MG 4 TIMES DAILY IV
     Route: 042
     Dates: start: 20120912, end: 20120913
  2. QUETIAPINE [Suspect]
     Indication: DELIRIUM
     Dosage: 25 MG 4 TIMES DAILY PO
     Route: 048
     Dates: start: 20120912, end: 20120913
  3. METOCLOPRAMIDE [Concomitant]

REACTIONS (2)
  - Tardive dyskinesia [None]
  - Extrapyramidal disorder [None]
